FAERS Safety Report 25869373 (Version 1)
Quarter: 2025Q4

REPORT INFORMATION
  Report Type: Spontaneous
  Country: US (occurrence: US)
  Receive Date: 20251001
  Receipt Date: 20251001
  Transmission Date: 20260118
  Serious: No
  Sender: RECKITT BENCKISER
  Company Number: US-INDIVIOR US-INDV-156625-2024

PATIENT
  Sex: Male

DRUGS (1)
  1. SUBOXONE [Suspect]
     Active Substance: BUPRENORPHINE HYDROCHLORIDE\NALOXONE HYDROCHLORIDE
     Indication: Injury
     Dosage: UNK
     Route: 065
     Dates: start: 2017

REACTIONS (5)
  - Off label use [Unknown]
  - Dental caries [Unknown]
  - Tooth fracture [Unknown]
  - Tooth loss [Unknown]
  - Toothache [Unknown]

NARRATIVE: CASE EVENT DATE: 20170101
